FAERS Safety Report 7590024-8 (Version None)
Quarter: 2011Q3

REPORT INFORMATION
  Report Type: 
  Country: None (occurrence: None)
  Receive Date: 20110705
  Receipt Date: 20110614
  Transmission Date: 20111222
  Serious: Yes (Congenital Anomaly)
  Sender: FDA-Public Use
  Company Number: A0934114A

PATIENT
  Sex: Male

DRUGS (1)
  1. PAXIL [Suspect]
     Dosage: 30MG UNKNOWN
     Route: 064

REACTIONS (2)
  - ARNOLD-CHIARI MALFORMATION [None]
  - MATERNAL EXPOSURE DURING PREGNANCY [None]
